FAERS Safety Report 16709481 (Version 2)
Quarter: 2019Q3

REPORT INFORMATION
  Report Type: Spontaneous
  Country: PL (occurrence: PL)
  Receive Date: 20190816
  Receipt Date: 20190924
  Transmission Date: 20191004
  Serious: Yes (Hospitalization, Other)
  Sender: FDA-Public Use
  Company Number: PL-ASTRAZENECA-2019SF14653

PATIENT
  Age: 68 Year
  Sex: Female

DRUGS (6)
  1. BUPRENORPHINE. [Concomitant]
     Active Substance: BUPRENORPHINE
     Indication: ARTHRALGIA
     Dosage: 35 PG/HOUR IN THE FORM OF TRANSDERMAL THERAPEUTIC SYSTEM EVERY 72 HOURS
     Route: 062
  2. FLECAINIDE [Concomitant]
     Active Substance: FLECAINIDE
     Indication: PRODUCT USED FOR UNKNOWN INDICATION
     Route: 048
  3. FLECAINIDE [Concomitant]
     Active Substance: FLECAINIDE
     Indication: PRODUCT USED FOR UNKNOWN INDICATION
     Route: 048
  4. NAPROXEN SODIUM. [Interacting]
     Active Substance: NAPROXEN SODIUM
     Indication: ARTHRALGIA
     Route: 065
  5. OMEPRAZOLE. [Suspect]
     Active Substance: OMEPRAZOLE
     Indication: PRODUCT USED FOR UNKNOWN INDICATION
     Route: 048
  6. WARFARIN [Interacting]
     Active Substance: WARFARIN
     Indication: PRODUCT USED FOR UNKNOWN INDICATION
     Dosage: 2/3 MG; ALTERING DOSE ACCORDING TO INR
     Route: 065

REACTIONS (4)
  - International normalised ratio increased [Recovered/Resolved]
  - Haematemesis [Recovered/Resolved]
  - Nausea [Recovered/Resolved]
  - Drug interaction [Unknown]
